FAERS Safety Report 4972495-6 (Version None)
Quarter: 2006Q2

REPORT INFORMATION
  Report Type: 
  Country: None (occurrence: None)
  Receive Date: 20060413
  Receipt Date: 20060321
  Transmission Date: 20061013
  Serious: Yes (Hospitalization)
  Sender: FDA-Public Use
  Company Number: CH-MERCK-0603CHE00310

PATIENT
  Age: 32 Year
  Sex: Male

DRUGS (7)
  1. HYDROCORTONE [Suspect]
     Indication: ADRENAL CORTICAL INSUFFICIENCY
     Route: 048
  2. RIFAMPIN [Suspect]
     Route: 065
  3. ETHAMBUTOL HYDROCHLORIDE [Concomitant]
     Route: 065
  4. PYRAZINAMIDE [Concomitant]
     Route: 065
  5. ISONIAZID [Concomitant]
     Route: 065
  6. OMEPRAZOLE [Suspect]
     Route: 065
  7. PYRIDOXINE [Concomitant]
     Route: 065

REACTIONS (5)
  - ADRENOCORTICAL INSUFFICIENCY ACUTE [None]
  - BLOOD PRESSURE DECREASED [None]
  - DRUG INTERACTION [None]
  - HYPERKALAEMIA [None]
  - HYPONATRAEMIA [None]
